FAERS Safety Report 14319617 (Version 1)
Quarter: 2017Q4

REPORT INFORMATION
  Report Type: Spontaneous
  Country: US (occurrence: US)
  Receive Date: 20171222
  Receipt Date: 20171222
  Transmission Date: 20180321
  Serious: Yes (Hospitalization)
  Sender: FDA-Public Use
  Company Number: US-TEVA-2017-US-835228

PATIENT
  Age: 41 Year
  Sex: Male

DRUGS (6)
  1. LURASIDONE [Suspect]
     Active Substance: LURASIDONE
     Indication: SCHIZOPHRENIA
     Route: 065
  2. LURASIDONE [Suspect]
     Active Substance: LURASIDONE
     Route: 065
  3. LURASIDONE [Suspect]
     Active Substance: LURASIDONE
     Route: 065
  4. LURASIDONE [Suspect]
     Active Substance: LURASIDONE
     Route: 065
  5. HALOPERIDOL. [Suspect]
     Active Substance: HALOPERIDOL
     Indication: SCHIZOPHRENIA
     Dosage: 10 MILLIGRAM DAILY;
     Route: 065
  6. HALOPERIDOL. [Suspect]
     Active Substance: HALOPERIDOL
     Dosage: 15 MILLIGRAM DAILY;
     Route: 065

REACTIONS (1)
  - Agranulocytosis [Recovering/Resolving]
